FAERS Safety Report 7802490-0 (Version None)
Quarter: 2011Q4

REPORT INFORMATION
  Report Type: 
  Country: None (occurrence: None)
  Receive Date: 20111007
  Receipt Date: 20110928
  Transmission Date: 20120403
  Serious: Yes (Other)
  Sender: FDA-Public Use
  Company Number: JP-GLAXOSMITHKLINE-B0750185A

PATIENT
  Age: 65 Year
  Sex: Male

DRUGS (5)
  1. LAMICTAL [Suspect]
     Dosage: 50MG PER DAY
     Route: 048
     Dates: start: 20110530, end: 20110703
  2. TEGRETOL [Concomitant]
     Route: 048
  3. LAMICTAL [Suspect]
     Indication: EPILEPSY
     Dosage: 25MG PER DAY
     Route: 048
     Dates: start: 20110516, end: 20110529
  4. LAMICTAL [Suspect]
     Dosage: 100MG PER DAY
     Route: 048
     Dates: start: 20110704
  5. PHENOBARBITAL TAB [Concomitant]
     Route: 065

REACTIONS (3)
  - LOSS OF CONSCIOUSNESS [None]
  - FEELING ABNORMAL [None]
  - EPILEPSY [None]
